FAERS Safety Report 16729457 (Version 2)
Quarter: 2019Q3

REPORT INFORMATION
  Report Type: Report from Study
  Country: FR (occurrence: FR)
  Receive Date: 20190822
  Receipt Date: 20190828
  Transmission Date: 20191005
  Serious: Yes (Other)
  Sender: FDA-Public Use
  Company Number: FR-JNJFOC-20190817155

PATIENT

DRUGS (4)
  1. REMICADE [Suspect]
     Active Substance: INFLIXIMAB
     Indication: PSORIASIS
     Route: 042
  2. STELARA [Suspect]
     Active Substance: USTEKINUMAB
     Indication: PSORIASIS
     Route: 058
  3. ADALIMUMAB [Suspect]
     Active Substance: ADALIMUMAB
     Indication: PSORIASIS
     Route: 065
  4. ETANERCEPT [Suspect]
     Active Substance: ETANERCEPT
     Indication: PSORIASIS
     Route: 065

REACTIONS (23)
  - Type I hypersensitivity [Unknown]
  - Infection [Unknown]
  - Myocardial infarction [Unknown]
  - Suicide attempt [Unknown]
  - Autoimmune disorder [Unknown]
  - Lung infection [Unknown]
  - Neoplasm malignant [Unknown]
  - Liver disorder [Unknown]
  - Parkinson^s disease [Unknown]
  - Depression [Unknown]
  - Skin infection [Unknown]
  - Rhinitis [Unknown]
  - Skin cancer [Unknown]
  - Nervous system disorder [Unknown]
  - Blood disorder [Unknown]
  - Pharyngitis [Unknown]
  - Malignant melanoma [Unknown]
  - Arthritis [Unknown]
  - Drug ineffective [Unknown]
  - Ear infection [Unknown]
  - Anxiety [Unknown]
  - Paraesthesia [Unknown]
  - Insomnia [Unknown]
